FAERS Safety Report 4648241-2 (Version None)
Quarter: 2005Q2

REPORT INFORMATION
  Report Type: 
  Country: None (occurrence: None)
  Receive Date: 20050331
  Receipt Date: 20050209
  Transmission Date: 20051028
  Serious: No
  Sender: FDA-Public Use
  Company Number: 05P-163-0289983-00

PATIENT
  Age: 60 Year
  Sex: Female
  Weight: 67.1324 kg

DRUGS (13)
  1. HUMIRA [Suspect]
     Indication: RHEUMATOID ARTHRITIS
     Dosage: 40 MG, 1 IN 1 WK SUBCUTANEOUS
     Route: 058
     Dates: start: 20050119
  2. PREDNISONE TAB [Concomitant]
  3. CELECOXIB [Concomitant]
  4. ALENDRONATE SODIUM [Concomitant]
  5. CALCIUM WITH VITAMIN D [Concomitant]
  6. LANSOPRAZOLE [Concomitant]
  7. VENLAFAXINE HCL [Concomitant]
  8. TOPROL-XL [Concomitant]
  9. POTASSIUM CHLORIDE [Concomitant]
  10. PARACETAMOL [Concomitant]
  11. MULTI-VITAMINS [Concomitant]
  12. NORTRIPTYLINE HCL [Concomitant]
  13. DEXTROPROPOXYPHENE [Concomitant]

REACTIONS (1)
  - INJECTION SITE PAIN [None]
